FAERS Safety Report 9471569 (Version 1)
Quarter: 2013Q3

REPORT INFORMATION
  Report Type: Spontaneous
  Country: US (occurrence: None)
  Receive Date: 20130819
  Receipt Date: 20130819
  Transmission Date: 20140515
  Serious: Yes (Hospitalization)
  Sender: FDA-Public Use
  Company Number: DSU-2013-04277

PATIENT
  Age: 69 Year
  Sex: Female
  Weight: 52.62 kg

DRUGS (6)
  1. WELCHOL (COLESEVELAM HYDROCHLORIDE) (625 MILLIGRAM, TABLET) (COLESEVELAM HYDROCHLORIDE) [Suspect]
     Indication: HYPERCHOLESTEROLAEMIA
     Dosage: 1875 MG (1875 MG, QD), PER ORAL
     Route: 048
  2. WELCHOL (COLESEVELAM HYDROCHLORIDE) (625 MILLIGRAM, TABLET) (COLESEVELAM HYDROCHLORIDE) [Suspect]
     Indication: TYPE 2 DIABETES MELLITUS
     Dosage: 1875 MG (1875 MG, QD), PER ORAL
     Route: 048
  3. GLUCOPHAGE [Concomitant]
  4. CITRACAL (CALCIUM CITRATE) [Concomitant]
  5. CARVEDILOL (CARVEDILOL) [Concomitant]
  6. LOSARTAN (LOSARTAN) (LOSARTAN) [Concomitant]

REACTIONS (12)
  - Drug administration error [None]
  - Intervertebral disc operation [None]
  - Depression [None]
  - Blood calcium increased [None]
  - Iliotibial band syndrome [None]
  - Dyspepsia [None]
  - Osteochondrosis [None]
  - Muscle atrophy [None]
  - Cartilage atrophy [None]
  - Weight decreased [None]
  - Feeling abnormal [None]
  - Bone disorder [None]
